FAERS Safety Report 20634792 (Version 1)
Quarter: 2022Q1

REPORT INFORMATION
  Report Type: Spontaneous
  Country: JP (occurrence: JP)
  Receive Date: 20220325
  Receipt Date: 20220325
  Transmission Date: 20220423
  Serious: Yes (Other)
  Sender: FDA-Public Use
  Company Number: JP-ROCHE-2999364

PATIENT
  Age: 69 Year
  Sex: Male

DRUGS (1)
  1. DIAZEPAM [Suspect]
     Active Substance: DIAZEPAM
     Indication: Tremor
     Dosage: HIGH DOSE
     Route: 065

REACTIONS (2)
  - Respiratory arrest [Not Recovered/Not Resolved]
  - Therapeutic product effect incomplete [Unknown]
